FAERS Safety Report 5586430-3 (Version None)
Quarter: 2008Q1

REPORT INFORMATION
  Report Type: 
  Country: None (occurrence: None)
  Receive Date: 20080108
  Receipt Date: 20080108
  Transmission Date: 20080703
  Serious: Yes (Life-Threatening, Hospitalization, Other)
  Sender: FDA-Public Use
  Company Number: None

PATIENT
  Age: 55 Year
  Sex: Male
  Weight: 99.7913 kg

DRUGS (1)
  1. CHANTIX [Suspect]
     Indication: SMOKING CESSATION THERAPY
     Dosage: UNIT-DOSE PACKAGING AS DIRECTED PO
     Route: 048
     Dates: start: 20070415, end: 20070525

REACTIONS (9)
  - ABNORMAL DREAMS [None]
  - ARTERY DISSECTION [None]
  - CEREBRAL INFARCTION [None]
  - FLIGHT OF IDEAS [None]
  - INSOMNIA [None]
  - MANIA [None]
  - NIGHTMARE [None]
  - SOMNAMBULISM [None]
  - TINNITUS [None]
